FAERS Safety Report 4439605-0 (Version None)
Quarter: 2004Q3

REPORT INFORMATION
  Report Type: 
  Country: None (occurrence: None)
  Receive Date: 20040902
  Receipt Date: 20040820
  Transmission Date: 20050211
  Serious: Yes (Hospitalization, Other)
  Sender: FDA-Public Use
  Company Number: DE-BRISTOL-MYERS SQUIBB COMPANY-12678884

PATIENT
  Age: 34 Year
  Sex: Male
  Weight: 86 kg

DRUGS (5)
  1. ABILIFY [Suspect]
     Indication: SCHIZOPHRENIA
     Dates: start: 20040719
  2. DIAZEPAM [Suspect]
     Indication: RESTLESSNESS
     Dates: end: 20040819
  3. QUETIAPINE [Concomitant]
     Dosage: INITIATED AT 1600 MG/DAY TAPERED TO 300 MG/DAY ON 12-AUG-2004.
     Dates: start: 20040525
  4. PROMETHAZINE [Concomitant]
     Dates: start: 20040812
  5. TENORMIN [Concomitant]

REACTIONS (3)
  - BLOOD BILIRUBIN INCREASED [None]
  - HAEMOLYSIS [None]
  - RESTLESSNESS [None]
